FAERS Safety Report 8373038-X (Version None)
Quarter: 2012Q2

REPORT INFORMATION
  Report Type: 
  Country: None (occurrence: None)
  Receive Date: 20120521
  Receipt Date: 20120511
  Transmission Date: 20120825
  Serious: Yes (Hospitalization)
  Sender: FDA-Public Use
  Company Number: GB-ABBOTT-12P-167-0933631-00

PATIENT
  Sex: Female
  Weight: 78 kg

DRUGS (2)
  1. METHOTREXATE [Concomitant]
     Indication: PRODUCT USED FOR UNKNOWN INDICATION
  2. HUMIRA [Suspect]
     Indication: RHEUMATOID ARTHRITIS
     Route: 058
     Dates: start: 20030710, end: 20120215

REACTIONS (10)
  - PLEURAL FIBROSIS [None]
  - PYREXIA [None]
  - COUGH [None]
  - PRODUCTIVE COUGH [None]
  - SPUTUM DISCOLOURED [None]
  - LOWER RESPIRATORY TRACT INFECTION [None]
  - MUSCULOSKELETAL CHEST PAIN [None]
  - PULMONARY EMBOLISM [None]
  - MALAISE [None]
  - MUSCULOSKELETAL PAIN [None]
